FAERS Safety Report 20449277 (Version 5)
Quarter: 2022Q2

REPORT INFORMATION
  Report Type: Spontaneous
  Country: MO (occurrence: MO)
  Receive Date: 20220209
  Receipt Date: 20220412
  Transmission Date: 20220721
  Serious: Yes (Hospitalization, Other)
  Sender: FDA-Public Use
  Company Number: MO-NOVARTISPH-NVSC2022MO026069

PATIENT
  Age: 81 Year
  Sex: Male
  Weight: 81 kg

DRUGS (1)
  1. BEOVU [Suspect]
     Active Substance: BROLUCIZUMAB-DBLL
     Indication: Polypoidal choroidal vasculopathy
     Dosage: UNK
     Route: 065

REACTIONS (14)
  - Aortic aneurysm [Unknown]
  - Back pain [Unknown]
  - Retinal oedema [Unknown]
  - Retinal vasculitis [Unknown]
  - Retinal haemorrhage [Not Recovered/Not Resolved]
  - Macular oedema [Recovered/Resolved]
  - Ocular hyperaemia [Unknown]
  - Intraocular pressure increased [Unknown]
  - Vision blurred [Unknown]
  - Eye pruritus [Unknown]
  - Foreign body sensation in eyes [Unknown]
  - Visual impairment [Recovered/Resolved]
  - Vitreous opacities [Recovering/Resolving]
  - Off label use [Unknown]

NARRATIVE: CASE EVENT DATE: 20220128
